FAERS Safety Report 13072398 (Version 1)
Quarter: 2016Q4

REPORT INFORMATION
  Report Type: Spontaneous
  Country: CN (occurrence: CN)
  Receive Date: 20161229
  Receipt Date: 20161229
  Transmission Date: 20170207
  Serious: Yes (Other)
  Sender: FDA-Public Use
  Company Number: CN-GLAXOSMITHKLINE-CN2016GSK192102

PATIENT
  Age: 50 Year
  Sex: Female
  Weight: 65 kg

DRUGS (1)
  1. VOLTAREN [Suspect]
     Active Substance: DICLOFENAC SODIUM
     Indication: ARTHRITIS
     Dosage: 1 DF, BID
     Route: 048
     Dates: start: 20160929, end: 20161003

REACTIONS (1)
  - Leukopenia [Recovered/Resolved]

NARRATIVE: CASE EVENT DATE: 20161003
